FAERS Safety Report 21441083 (Version 1)
Quarter: 2022Q4

REPORT INFORMATION
  Report Type: Spontaneous
  Country: US (occurrence: None)
  Receive Date: 20221010
  Receipt Date: 20221010
  Transmission Date: 20230113
  Serious: No
  Sender: FDA-Public Use
  Company Number: None

PATIENT
  Age: 40 Year

DRUGS (2)
  1. ATENOLOL [Suspect]
     Active Substance: ATENOLOL
  2. FROVATRIPTAN [Suspect]
     Active Substance: FROVATRIPTAN

REACTIONS (1)
  - Treatment failure [None]

NARRATIVE: CASE EVENT DATE: 20221010
